FAERS Safety Report 4933736-4 (Version None)
Quarter: 2006Q1

REPORT INFORMATION
  Report Type: 
  Country: None (occurrence: None)
  Receive Date: 20060306
  Receipt Date: 20060224
  Transmission Date: 20060701
  Serious: Yes (Other)
  Sender: FDA-Public Use
  Company Number: DE-MERCK-0602DEU00222

PATIENT
  Age: 53 Year
  Sex: Male
  Weight: 75 kg

DRUGS (4)
  1. ZETIA [Suspect]
     Indication: HYPERCHOLESTEROLAEMIA
     Route: 048
     Dates: start: 20030828
  2. ATORVASTATIN CALCIUM [Suspect]
     Indication: HYPERCHOLESTEROLAEMIA
     Route: 048
     Dates: start: 20030721, end: 20040130
  3. CANDESARTAN CILEXETIL [Concomitant]
     Route: 048
     Dates: start: 19991119
  4. ASPIRIN [Concomitant]
     Route: 048

REACTIONS (4)
  - BLOOD CREATINE PHOSPHOKINASE INCREASED [None]
  - BLOOD CREATINE PHOSPHOKINASE MB INCREASED [None]
  - C-REACTIVE PROTEIN INCREASED [None]
  - STREPTOCOCCAL SEROLOGY POSITIVE [None]
